FAERS Safety Report 8153230-X (Version None)
Quarter: 2012Q1

REPORT INFORMATION
  Report Type: 
  Country: None (occurrence: None)
  Receive Date: 20120221
  Receipt Date: 20120210
  Transmission Date: 20120608
  Serious: Yes (Other)
  Sender: FDA-Public Use
  Company Number: AU-JNJFOC-20120206601

PATIENT
  Sex: Female
  Weight: 68.1 kg

DRUGS (3)
  1. TRUSOPT [Concomitant]
     Indication: EYE DISORDER
     Route: 065
  2. NOTEN [Concomitant]
     Indication: BLOOD PRESSURE
     Route: 065
  3. NIZORAL [Suspect]
     Indication: OESOPHAGEAL CANDIDIASIS
     Route: 048

REACTIONS (5)
  - MYALGIA [None]
  - PARAESTHESIA [None]
  - PAIN IN EXTREMITY [None]
  - DUODENAL ULCER [None]
  - BREAST PAIN [None]
